FAERS Safety Report 7379085-9 (Version None)
Quarter: 2011Q1

REPORT INFORMATION
  Report Type: 
  Country: None (occurrence: None)
  Receive Date: 20110328
  Receipt Date: 20110314
  Transmission Date: 20110831
  Serious: Yes (Hospitalization, Other)
  Sender: FDA-Public Use
  Company Number: PHHY2011US21158

PATIENT
  Age: 28 Year
  Sex: Female

DRUGS (14)
  1. CYCLOPHOSPHAMIDE [Suspect]
     Dosage: 200 MG/M2, UNK
  2. CYTARABINE [Suspect]
     Dosage: 70 MG, UNK
     Route: 037
  3. IFOSFAMIDE [Suspect]
     Dosage: 1500 MG/M2, UNK
  4. RED BLOOD CELLS [Concomitant]
     Dosage: UNK
  5. VINCRISTINE [Suspect]
     Dosage: 2 MG, UNK
  6. DOXORUBICIN [Suspect]
     Dosage: 40 MG/M2, UNK
  7. MESNA [Suspect]
     Dosage: 1500 MG/M2, UNK
  8. ETOPOSIDE [Suspect]
     Dosage: 60 MG/M2, UNK
  9. FILGRASTIM [Concomitant]
     Dosage: UNK
  10. PLATELETS [Concomitant]
     Dosage: UNK
  11. PREDNISOLONE [Suspect]
     Dosage: 100 MG, UNK
     Route: 048
  12. CYCLOPHOSPHAMIDE [Suspect]
     Dosage: 800 MG/M2, UNK
     Route: 042
  13. CYTARABINE [Suspect]
     Dosage: 3.2 G/M2, UNK
     Route: 042
  14. RITUXIMAB [Suspect]
     Dosage: 375 MG/M2, UNK

REACTIONS (10)
  - AMNIOTIC FLUID VOLUME DECREASED [None]
  - BLOOD LACTATE DEHYDROGENASE INCREASED [None]
  - NAUSEA [None]
  - POSTPARTUM DEPRESSION [None]
  - STILLBIRTH [None]
  - DRUG EXPOSURE DURING PREGNANCY [None]
  - FEBRILE NEUTROPENIA [None]
  - EROSIVE OESOPHAGITIS [None]
  - VOMITING [None]
  - VAGINAL HAEMORRHAGE [None]
